FAERS Safety Report 6756786-4 (Version None)
Quarter: 2010Q2

REPORT INFORMATION
  Report Type: 
  Country: None (occurrence: None)
  Receive Date: 20100604
  Receipt Date: 20100528
  Transmission Date: 20101027
  Serious: Yes (Death)
  Sender: FDA-Public Use
  Company Number: US-JNJFOC-20100502771

PATIENT
  Sex: Male
  Weight: 14.52 kg

DRUGS (4)
  1. CHILDREN'S MOTRIN [Suspect]
     Route: 048
  2. CHILDREN'S MOTRIN [Suspect]
     Indication: DRUG USE FOR UNKNOWN INDICATION
     Route: 048
  3. DIMETAPP [Suspect]
     Indication: DRUG USE FOR UNKNOWN INDICATION
  4. CLARITIN [Suspect]
     Indication: DRUG USE FOR UNKNOWN INDICATION

REACTIONS (4)
  - LUNG INFILTRATION [None]
  - PRODUCT QUALITY ISSUE [None]
  - PULMONARY CONGESTION [None]
  - SUDDEN DEATH [None]
